FAERS Safety Report 5275628-X (Version None)
Quarter: 2007Q1

REPORT INFORMATION
  Report Type: 
  Country: None (occurrence: None)
  Receive Date: 20070326
  Receipt Date: 20070312
  Transmission Date: 20070707
  Serious: Yes (Hospitalization)
  Sender: FDA-Public Use
  Company Number: PHBS2007JP03832

PATIENT
  Age: 35 Year
  Sex: Male

DRUGS (8)
  1. TEGRETOL [Suspect]
     Dosage: 1000 MG/DAY
     Route: 048
  2. TEGRETOL [Suspect]
     Dosage: 1200 MG/DAY
     Route: 048
  3. TEGRETOL [Suspect]
     Dosage: 600 MG/DAY
     Route: 048
  4. TIMIPERONE [Concomitant]
     Dosage: 50 MG/DAY
     Route: 065
  5. SULTOPRIDE HYDROCHLORIDE [Concomitant]
     Dosage: 1600 MG/DAY
     Route: 065
  6. LEVOMEPROMAZINE MALEATE [Concomitant]
     Dosage: 300 MG/DAY
     Route: 065
  7. LITHIUM CARBONATE [Concomitant]
     Dosage: 600 MG/DAY
     Route: 048
  8. HALOPERIDOL [Concomitant]

REACTIONS (8)
  - ANAEMIA [None]
  - BLOOD ALBUMIN DECREASED [None]
  - DEPRESSED LEVEL OF CONSCIOUSNESS [None]
  - HAEMOGLOBIN DECREASED [None]
  - ILEUS [None]
  - MEGACOLON [None]
  - PROTEIN TOTAL DECREASED [None]
  - RED BLOOD CELL COUNT DECREASED [None]
